FAERS Safety Report 20152928 (Version 3)
Quarter: 2022Q1

REPORT INFORMATION
  Report Type: Spontaneous
  Country: JP (occurrence: JP)
  Receive Date: 20211206
  Receipt Date: 20220131
  Transmission Date: 20220424
  Serious: Yes (Life-Threatening, Hospitalization, Other)
  Sender: FDA-Public Use
  Company Number: JP-ASTELLAS-2021JP020835

PATIENT
  Sex: Female

DRUGS (11)
  1. LINACLOTIDE [Suspect]
     Active Substance: LINACLOTIDE
     Indication: Constipation
     Dosage: 0.25 MG, TWICE DAILY, BEFORE BREAKFAST AND DINNER
     Route: 048
     Dates: start: 20200828
  2. ROXADUSTAT [Suspect]
     Active Substance: ROXADUSTAT
     Indication: Nephrogenic anaemia
     Dosage: 50 MG, THRICE WEEKLY (TUESDAYS, THURSDAYS, AND SATURDAYS), ONCE DAILY AFTER BREAKFAST
     Route: 048
     Dates: start: 20210513, end: 20210914
  3. ASPIRIN [Concomitant]
     Active Substance: ASPIRIN
     Indication: Cerebellar infarction
     Dosage: 100 MG, ONCE DAILY, AFTER BREAKFAST
     Route: 048
  4. TELMISARTAN [Concomitant]
     Active Substance: TELMISARTAN
     Indication: Hypertension
     Dosage: 40 MG, QD
     Route: 048
  5. LANSOPRAZOLE [Concomitant]
     Active Substance: LANSOPRAZOLE
     Indication: Product used for unknown indication
     Dosage: 15 MG, ONCE DAILY, AFTER BREAKFAST
     Route: 048
     Dates: end: 20210906
  6. MEMANTINE [Concomitant]
     Active Substance: MEMANTINE
     Indication: Dementia with Lewy bodies
     Dosage: 10 MG, ONCE DAILY, AFTER BREAKFAST
     Route: 048
     Dates: start: 20190308
  7. AMLODIPINE [Concomitant]
     Active Substance: AMLODIPINE BESYLATE
     Indication: Hypertension
     Dosage: 5 MG, ONCE DAILY, AFTER BREAKFAST
     Route: 048
     Dates: start: 20190614
  8. KREMEZIN [Concomitant]
     Active Substance: ACTIVATED CHARCOAL
     Indication: Chronic kidney disease
     Dosage: 2000 MG, THRICE DAILY, IN 2 HOURS AFTER, BREAKFAST, LUNCH, DINNER
     Route: 048
     Dates: start: 20200703
  9. CALCIUM POLYSTYRENE SULFONATE [Concomitant]
     Active Substance: CALCIUM POLYSTYRENE SULFONATE
     Indication: Chronic kidney disease
     Dosage: 25 G, ONCE DAILY, AFTER BREAKFAST
     Route: 048
     Dates: start: 20200713
  10. SODIUM FERROUS CITRATE [Concomitant]
     Active Substance: SODIUM FERROUS CITRATE
     Indication: Nephrogenic anaemia
     Dosage: 50 MG, ONCE DAILY, AFTER BREAKFAST
     Route: 048
     Dates: start: 20210608
  11. NEXIUM [Concomitant]
     Active Substance: ESOMEPRAZOLE MAGNESIUM
     Indication: Chemotherapy side effect prophylaxis
     Dosage: 20 MG, ONCE DAILY, AFTER BREAKFAST
     Route: 048
     Dates: start: 20210906

REACTIONS (4)
  - Stress cardiomyopathy [Recovered/Resolved]
  - Pneumonia aspiration [Recovered/Resolved]
  - Chondrocalcinosis pyrophosphate [Unknown]
  - Off label use [Unknown]

NARRATIVE: CASE EVENT DATE: 20200828
